FAERS Safety Report 18398800 (Version 1)
Quarter: 2020Q4

REPORT INFORMATION
  Report Type: Spontaneous
  Country: US (occurrence: US)
  Receive Date: 20201019
  Receipt Date: 20201019
  Transmission Date: 20210114
  Serious: No
  Sender: FDA-Public Use
  Company Number: US-ELI_LILLY_AND_COMPANY-US202001006393

PATIENT

DRUGS (1)
  1. EMGALITY [Suspect]
     Active Substance: GALCANEZUMAB-GNLM
     Indication: MIGRAINE
     Dosage: UNK, EVERY 21 DAYS
     Route: 065

REACTIONS (4)
  - Therapeutic response shortened [Unknown]
  - Injection site pain [Unknown]
  - Injection site urticaria [Unknown]
  - Inappropriate schedule of product administration [Unknown]
